FAERS Safety Report 10874591 (Version 1)
Quarter: 2015Q1

REPORT INFORMATION
  Report Type: Spontaneous
  Country: US (occurrence: None)
  Receive Date: 20150223
  Receipt Date: 20150223
  Transmission Date: 20150721
  Serious: Yes (Disabling)
  Sender: FDA-Public Use
  Company Number: None

PATIENT
  Age: 54 Year
  Sex: Female
  Weight: 64.86 kg

DRUGS (6)
  1. CALCIUM/VITAMIN D [Concomitant]
     Active Substance: CALCIUM\VITAMIN D
  2. LOW DOSE ASPIRIN [Concomitant]
     Active Substance: ASPIRIN
  3. LETROZOLE 2.5 MG [Suspect]
     Active Substance: LETROZOLE
     Indication: PROPHYLAXIS
     Dosage: 1 PILL
     Route: 048
     Dates: start: 20141001, end: 20141031
  4. LETROZOLE 2.5 MG [Suspect]
     Active Substance: LETROZOLE
     Indication: BREAST CANCER
     Dosage: 1 PILL
     Route: 048
     Dates: start: 20141001, end: 20141031
  5. CLONIDINE. [Concomitant]
     Active Substance: CLONIDINE
  6. FEMARA [Concomitant]
     Active Substance: LETROZOLE

REACTIONS (1)
  - Thrombosis [None]

NARRATIVE: CASE EVENT DATE: 20141013
